FAERS Safety Report 9620819 (Version 1)
Quarter: 2013Q4

REPORT INFORMATION
  Report Type: Spontaneous
  Country: FR (occurrence: FR)
  Receive Date: 20131015
  Receipt Date: 20131015
  Transmission Date: 20140711
  Serious: Yes (Life-Threatening, Hospitalization)
  Sender: FDA-Public Use
  Company Number: FR-JNJFOC-20131007567

PATIENT
  Sex: Female

DRUGS (2)
  1. ALOSTIL 5% [Suspect]
     Route: 061
  2. ALOSTIL 5% [Suspect]
     Indication: PRODUCT USED FOR UNKNOWN INDICATION
     Route: 061
     Dates: start: 20130916, end: 20130916

REACTIONS (3)
  - Cerebrovascular accident [Unknown]
  - Skin reaction [Unknown]
  - Wrong patient received medication [Recovered/Resolved]
